FAERS Safety Report 12915143 (Version 1)
Quarter: 2016Q4

REPORT INFORMATION
  Report Type: Spontaneous
  Country: US (occurrence: US)
  Receive Date: 20161106
  Receipt Date: 20161106
  Transmission Date: 20170207
  Serious: No
  Sender: FDA-Public Use
  Company Number: US-RELYPSA-RLY2016002544

PATIENT
  Sex: Male

DRUGS (8)
  1. LANTUS [Concomitant]
     Active Substance: INSULIN GLARGINE
  2. FERROUS SULFATE. [Concomitant]
     Active Substance: FERROUS SULFATE
  3. VELTASSA [Suspect]
     Active Substance: PATIROMER
     Indication: HYPERKALAEMIA
     Dosage: 8.4 G, QD
     Route: 048
     Dates: start: 201606
  4. ADVAIR HFA [Concomitant]
     Active Substance: FLUTICASONE PROPIONATE\SALMETEROL XINAFOATE
  5. PANTOPRAZOLE [Concomitant]
     Active Substance: PANTOPRAZOLE SODIUM
  6. LACTULOSE. [Concomitant]
     Active Substance: LACTULOSE
  7. FUROSEMIDE. [Concomitant]
     Active Substance: FUROSEMIDE
  8. XIFAXAN [Concomitant]
     Active Substance: RIFAXIMIN

REACTIONS (2)
  - Insomnia [Recovered/Resolved]
  - Drug dose omission [Recovered/Resolved]

NARRATIVE: CASE EVENT DATE: 2016
